FAERS Safety Report 9607267 (Version 3)
Quarter: 2016Q1

REPORT INFORMATION
  Report Type: Spontaneous
  Country: US (occurrence: US)
  Receive Date: 20131009
  Receipt Date: 20160212
  Transmission Date: 20160526
  Serious: Yes (Death, Hospitalization, Other)
  Sender: FDA-Public Use
  Company Number: US-009507513-1310USA002786

PATIENT
  Age: 74 Year
  Sex: Male

DRUGS (1)
  1. NOXAFIL [Suspect]
     Active Substance: POSACONAZOLE
     Dosage: 10 ML EVERY EIGHT HOURS
     Route: 048

REACTIONS (4)
  - Cardiac arrest [Fatal]
  - Thrombosis [Fatal]
  - Tracheostomy [Unknown]
  - Haemorrhage [Unknown]

NARRATIVE: CASE EVENT DATE: 20131003
